FAERS Safety Report 8375825-0 (Version None)
Quarter: 2012Q2

REPORT INFORMATION
  Report Type: 
  Country: None (occurrence: None)
  Receive Date: 20120522
  Receipt Date: 20120507
  Transmission Date: 20120825
  Serious: Yes (Hospitalization, Other)
  Sender: FDA-Public Use
  Company Number: US-JNJFOC-20111111054

PATIENT
  Sex: Female
  Weight: 68.95 kg

DRUGS (6)
  1. DURAGESIC-100 [Suspect]
     Indication: PAIN
     Route: 062
  2. DURAGESIC-100 [Suspect]
     Route: 062
     Dates: start: 20040101
  3. DURAGESIC-100 [Suspect]
     Route: 062
     Dates: start: 20030101
  4. DURAGESIC-100 [Suspect]
     Route: 062
     Dates: start: 20090101
  5. DURAGESIC-100 [Suspect]
     Route: 062
  6. DURAGESIC-100 [Suspect]
     Route: 062
     Dates: start: 20050101, end: 20090101

REACTIONS (29)
  - HAEMORRHAGE [None]
  - PRODUCT QUALITY ISSUE [None]
  - DIZZINESS [None]
  - WITHDRAWAL SYNDROME [None]
  - BLADDER PROLAPSE [None]
  - ADVERSE EVENT [None]
  - ANAEMIA [None]
  - RIB FRACTURE [None]
  - LOWER LIMB FRACTURE [None]
  - DIARRHOEA [None]
  - DRUG ADMINISTERED AT INAPPROPRIATE SITE [None]
  - DEPRESSION [None]
  - HEAD INJURY [None]
  - COMA [None]
  - SPINAL CORD INJURY [None]
  - LOSS OF CONSCIOUSNESS [None]
  - PNEUMOTHORAX TRAUMATIC [None]
  - SPLENECTOMY [None]
  - ABASIA [None]
  - MALAISE [None]
  - DRUG DOSE OMISSION [None]
  - CERVICAL VERTEBRAL FRACTURE [None]
  - ROAD TRAFFIC ACCIDENT [None]
  - INTESTINAL PROLAPSE [None]
  - FOOT FRACTURE [None]
  - INAPPROPRIATE SCHEDULE OF DRUG ADMINISTRATION [None]
  - WRONG TECHNIQUE IN DRUG USAGE PROCESS [None]
  - DRUG DEPENDENCE [None]
  - BREAKTHROUGH PAIN [None]
